FAERS Safety Report 8961342 (Version 2)
Quarter: 2020Q3

REPORT INFORMATION
  Report Type: Report from Study
  Country: IN (occurrence: IN)
  Receive Date: 20121212
  Receipt Date: 20130215
  Transmission Date: 20201105
  Serious: Yes (Hospitalization)
  Sender: FDA-Public Use
  Company Number: IN-PFIZER INC-2012116827

PATIENT
  Age: 55 Year
  Sex: Female
  Weight: 69 kg

DRUGS (9)
  1. TOFACITINIB CITRATE [Suspect]
     Active Substance: TOFACITINIB CITRATE
     Dosage: 10 MG, 2X/DAY
     Route: 048
     Dates: start: 20120323, end: 20120509
  2. LARIAGO [Concomitant]
     Indication: RHEUMATOID ARTHRITIS
     Dosage: 250 MG, 1X/DAY
     Route: 048
     Dates: start: 200901
  3. ELTROXIN [Concomitant]
     Active Substance: LEVOTHYROXINE
     Indication: THYROID DISORDER
     Dosage: 100 UG, 1X/DAY
     Route: 048
     Dates: start: 1999
  4. ALPRAZOLAM. [Concomitant]
     Active Substance: ALPRAZOLAM
     Indication: MUSCLE RELAXANT THERAPY
     Dosage: 0.25 MG, BED TIME
     Route: 048
     Dates: start: 20090810
  5. ESOMEPRAZOLE. [Concomitant]
     Active Substance: ESOMEPRAZOLE MAGNESIUM
     Indication: PROPHYLAXIS
     Dosage: 20 MG, 1X/DAY
     Route: 048
     Dates: start: 20090810
  6. SHELCAL [Concomitant]
     Indication: MINERAL SUPPLEMENTATION
     Dosage: 500 MG, 1X/DAY
     Route: 048
     Dates: start: 20090810
  7. TOFACITINIB CITRATE [Suspect]
     Active Substance: TOFACITINIB CITRATE
     Indication: RHEUMATOID ARTHRITIS
     Dosage: 10 MG, 2X/DAY
     Route: 048
     Dates: start: 20100520, end: 20120318
  8. ETORICOXIB. [Suspect]
     Active Substance: ETORICOXIB
     Indication: ARTHRITIS
     Dosage: 90 MG, 2X/DAY
     Route: 048
     Dates: start: 20090925, end: 20120318
  9. BECOZYME [Concomitant]
     Indication: VITAMIN SUPPLEMENTATION
     Dosage: 1, 1X/DAY
     Route: 048
     Dates: start: 20090925

REACTIONS (1)
  - Myocardial infarction [Recovered/Resolved with Sequelae]

NARRATIVE: CASE EVENT DATE: 20120317
